FAERS Safety Report 12460434 (Version 8)
Quarter: 2023Q1

REPORT INFORMATION
  Report Type: Spontaneous
  Country: US (occurrence: US)
  Receive Date: 20160613
  Receipt Date: 20230227
  Transmission Date: 20230417
  Serious: Yes (Hospitalization, Other)
  Sender: FDA-Public Use
  Company Number: US-PFIZER INC-2016266871

PATIENT
  Age: 72 Year
  Sex: Female

DRUGS (23)
  1. TIKOSYN [Suspect]
     Active Substance: DOFETILIDE
     Indication: Atrial fibrillation
     Dosage: 250 MG, 2X/DAY (250MCG/0.25MG, TAKE 1 IN MORNING, 1 IN AFTERNOON, ABOUT 2PM OR 3PM)
     Dates: start: 20151112
  2. TIKOSYN [Suspect]
     Active Substance: DOFETILIDE
     Dosage: 500 UG, 2X/DAY
  3. AMLODIPINE [Concomitant]
     Active Substance: AMLODIPINE BESYLATE
     Dosage: 5 MG, 1X/DAY
  4. WARFARIN [Concomitant]
     Active Substance: WARFARIN
     Dosage: 2 MG, 1X/DAY
  5. LEVOTHYROXINE [Concomitant]
     Active Substance: LEVOTHYROXINE
     Dosage: 100 UG, 1X/DAY
  6. CARVEDILOL [Concomitant]
     Active Substance: CARVEDILOL
     Dosage: 25 MG, 2X/DAY ONE IN MORNING AND ONE IN NIGHT
  7. LASIX [Concomitant]
     Active Substance: FUROSEMIDE
     Dosage: 40 MG, 2X/DAY ONE IN MORNING AND ONE IN AFTERNOON
  8. GABAPENTIN [Concomitant]
     Active Substance: GABAPENTIN
     Dosage: 300 MG, 3X/DAY ONE IN MORNING, AFTERNOON AND AT NIGHT
  9. MAGNESIUM OXIDE [Concomitant]
     Active Substance: MAGNESIUM OXIDE
     Dosage: 400 MG, 1X/DAY ONE IN MORNING
  10. PRAVASTATIN [Concomitant]
     Active Substance: PRAVASTATIN
     Dosage: 40 MG, 1X/DAY AT NIGHT
  11. SPIRIVA [Concomitant]
     Active Substance: TIOTROPIUM BROMIDE MONOHYDRATE
     Dosage: 2 DF, 1X/DAY IN THE MORNING
  12. TYLENOL [Concomitant]
     Active Substance: ACETAMINOPHEN
     Dosage: 2 DF, 1X/DAY IN THE AFTERNOON
  13. ALEVE [Concomitant]
     Active Substance: NAPROXEN SODIUM
     Dosage: 2 DF, 1X/DAY IN MORNING
  14. TYLENOL PM [Concomitant]
     Active Substance: ACETAMINOPHEN\DIPHENHYDRAMINE
     Dosage: 1 DF, 1X/DAY IN NIGHT
  15. MINERALS\VITAMINS [Concomitant]
     Active Substance: MINERALS\VITAMINS
     Dosage: 1 DF, 1X/DAY IN THE MORNING
  16. CALCIUM\VITAMIN D [Concomitant]
     Active Substance: CALCIUM\VITAMIN D
     Dosage: 1 DF, 1X/DAY AT NIGHT
  17. NATURAL VITAMIN C [Concomitant]
     Dosage: 500 MG, 1X/DAY IN MORNING
  18. ASPIRIN [Concomitant]
     Active Substance: ASPIRIN
     Dosage: 81 MG, 1X/DAY AT NIGHT
  19. POTASSIUM CHLORIDE [Concomitant]
     Active Substance: POTASSIUM CHLORIDE
     Dosage: 1 DF, 2X/DAY MORNING AND AFTERNOON
  20. VITAMIN B12 [Concomitant]
     Active Substance: CYANOCOBALAMIN
     Dosage: 1000 UG, 1X/DAY IN THE MORNING
  21. VITAMIN D [Concomitant]
     Active Substance: VITAMIN D NOS
     Dosage: 1 DF, 1X/DAY IN THE MORNING
  22. CLEARLAX [Concomitant]
     Active Substance: POLYETHYLENE GLYCOL 3350
     Dosage: ONE TEASPOON IN THE MORNING AFTER COFFEE
  23. FIBER POWDER SUGAR FREE 100% NATURAL SUPPLEMENT [Concomitant]
     Dosage: 1 TEASPOON IN THE MORNING WITH COFFEE

REACTIONS (11)
  - Intervertebral disc compression [Not Recovered/Not Resolved]
  - Chronic obstructive pulmonary disease [Unknown]
  - Fall [Unknown]
  - Dyspnoea exertional [Not Recovered/Not Resolved]
  - Movement disorder [Not Recovered/Not Resolved]
  - Musculoskeletal chest pain [Unknown]
  - Product prescribing error [Unknown]
  - Dyspnoea [Not Recovered/Not Resolved]
  - Cardiac disorder [Unknown]
  - Dysphonia [Unknown]
  - Eye disorder [Unknown]

NARRATIVE: CASE EVENT DATE: 20221201
